FAERS Safety Report 10870930 (Version 3)
Quarter: 2015Q2

REPORT INFORMATION
  Report Type: Spontaneous
  Country: US (occurrence: US)
  Receive Date: 20150226
  Receipt Date: 20150420
  Transmission Date: 20150821
  Serious: Yes (Hospitalization, Other)
  Sender: FDA-Public Use
  Company Number: US-PFIZER INC-2015069177

PATIENT
  Age: 20 Year
  Sex: Female

DRUGS (3)
  1. ZITHROMAX [Suspect]
     Active Substance: AZITHROMYCIN DIHYDRATE
     Indication: PHARYNGITIS STREPTOCOCCAL
  2. ZITHROMAX [Suspect]
     Active Substance: AZITHROMYCIN DIHYDRATE
     Indication: OROPHARYNGEAL PAIN
     Dosage: 500 MG, 1X/DAY (FIRST DOSE)
     Route: 048
     Dates: start: 20121031, end: 20121031
  3. ZITHROMAX [Suspect]
     Active Substance: AZITHROMYCIN DIHYDRATE
     Indication: PHARYNGITIS
     Dosage: 500 MG, SINGLE (250 MG TWO TABLETS IN THE FIRST DAY MORNING)
     Route: 048
     Dates: start: 20121101, end: 20121101

REACTIONS (3)
  - Small intestinal obstruction [Recovering/Resolving]
  - Stevens-Johnson syndrome [Recovering/Resolving]
  - Deformity [Not Recovered/Not Resolved]

NARRATIVE: CASE EVENT DATE: 20121031
